FAERS Safety Report 9565447 (Version 2)
Quarter: 2013Q4

REPORT INFORMATION
  Report Type: Spontaneous
  Country: US (occurrence: US)
  Receive Date: 20130930
  Receipt Date: 20131001
  Transmission Date: 20140711
  Serious: Yes (Other)
  Sender: FDA-Public Use
  Company Number: US-BAYER-2013-117028

PATIENT
  Age: 31 Year
  Sex: Female
  Weight: 63.04 kg

DRUGS (4)
  1. YASMIN [Suspect]
  2. MIDRIN [Concomitant]
  3. FIORICET [Concomitant]
  4. VERELAN [Concomitant]

REACTIONS (1)
  - Ischaemic stroke [None]
